FAERS Safety Report 5820140-X (Version None)
Quarter: 2008Q3

REPORT INFORMATION
  Report Type: 
  Country: None (occurrence: None)
  Receive Date: 20080724
  Receipt Date: 20080710
  Transmission Date: 20090109
  Serious: Yes (Other)
  Sender: FDA-Public Use
  Company Number: PHHY2008CL13619

PATIENT
  Age: 80 Year
  Sex: Male

DRUGS (2)
  1. GLEEVEC [Suspect]
     Indication: CHRONIC MYELOID LEUKAEMIA
     Dosage: 70 MG/ DAY
  2. HYDROCHLOROTHIAZIDE [Concomitant]
     Dosage: 25 MG/ DAY

REACTIONS (5)
  - ASCITES [None]
  - GENERALISED OEDEMA [None]
  - PLEURAL EFFUSION [None]
  - POLYSEROSITIS [None]
  - SKIN LESION [None]
